FAERS Safety Report 6536262-4 (Version None)
Quarter: 2010Q1

REPORT INFORMATION
  Report Type: 
  Country: None (occurrence: None)
  Receive Date: 20100113
  Receipt Date: 20091113
  Transmission Date: 20100710
  Serious: No
  Sender: FDA-Public Use
  Company Number: US-ALLERGAN-0915839US

PATIENT
  Sex: Female

DRUGS (2)
  1. LATISSE [Suspect]
     Indication: GROWTH OF EYELASHES
     Dosage: UNK
     Route: 061
  2. LATISSE [Suspect]
     Indication: HAIR GROWTH ABNORMAL

REACTIONS (2)
  - BLEPHAROSPASM [None]
  - DRUG ADMINISTERED AT INAPPROPRIATE SITE [None]
